FAERS Safety Report 13144553 (Version 2)
Quarter: 2017Q1

REPORT INFORMATION
  Report Type: Spontaneous
  Country: US (occurrence: US)
  Receive Date: 20170124
  Receipt Date: 20170316
  Transmission Date: 20170428
  Serious: No
  Sender: FDA-Public Use
  Company Number: US-ASTRAZENECA-2017SE07870

PATIENT
  Age: 93 Year
  Sex: Female
  Weight: 56 kg

DRUGS (5)
  1. NEXIUM 24HR [Suspect]
     Active Substance: ESOMEPRAZOLE MAGNESIUM
     Indication: FLATULENCE
     Dosage: UNK, 1X/DAY
     Route: 048
  2. NEXIUM 24HR [Suspect]
     Active Substance: ESOMEPRAZOLE MAGNESIUM
     Indication: FLATULENCE
     Route: 048
  3. NEXIUM 24HR [Suspect]
     Active Substance: ESOMEPRAZOLE MAGNESIUM
     Indication: NAUSEA
     Route: 048
  4. LEVOXYL [Concomitant]
     Active Substance: LEVOTHYROXINE SODIUM
     Dosage: UNK
  5. NEXIUM 24HR [Suspect]
     Active Substance: ESOMEPRAZOLE MAGNESIUM
     Indication: NAUSEA
     Dosage: UNK, 1X/DAY
     Route: 048

REACTIONS (4)
  - Gastric disorder [Unknown]
  - Product use issue [Unknown]
  - Intentional product misuse [Unknown]
  - Product quality issue [Unknown]
